FAERS Safety Report 9039583 (Version 1)
Quarter: 2013Q1

REPORT INFORMATION
  Report Type: Report from Study
  Country: US (occurrence: US)
  Receive Date: 20130129
  Receipt Date: 20130129
  Transmission Date: 20140127
  Serious: No
  Sender: FDA-Public Use
  Company Number: US-ABBOTT-12P-163-0940028-00

PATIENT
  Age: 51 Year
  Sex: Male

DRUGS (11)
  1. HUMIRA 40 MG/0.8 ML PEN [Suspect]
     Indication: RHEUMATOID ARTHRITIS
  2. VITAMIN D [Concomitant]
     Indication: PRODUCT USED FOR UNKNOWN INDICATION
     Dosage: WEEKLY
     Route: 048
  3. LOSARTAN [Concomitant]
     Indication: CORONARY ARTERY OCCLUSION
     Dosage: 25MG DAILY
     Route: 048
  4. FLEXERIL [Concomitant]
     Indication: MUSCLE RELAXANT THERAPY
     Route: 048
  5. PROZAC [Concomitant]
     Indication: ANXIETY
     Dosage: 20MG DAILY
     Route: 048
  6. TEGRETOL [Concomitant]
     Indication: PAIN
     Dosage: 200MG DAILY
     Route: 048
  7. VALIUM [Concomitant]
     Indication: MUSCLE SPASMS
     Route: 048
  8. VALIUM [Concomitant]
     Indication: PRODUCT USED FOR UNKNOWN INDICATION
  9. ZETIA [Concomitant]
     Indication: BLOOD CHOLESTEROL
     Dosage: 10MG DAILY
     Route: 048
  10. PERCOCET [Concomitant]
     Indication: PAIN
     Dosage: 5/325MG THREE TIMES DAILY AS NEEDED
     Route: 048
  11. PREVACID [Concomitant]
     Indication: GASTRIC DISORDER
     Dosage: 30MG DAILY
     Route: 048

REACTIONS (5)
  - Mobility decreased [Not Recovered/Not Resolved]
  - Pain [Not Recovered/Not Resolved]
  - Pain [Not Recovered/Not Resolved]
  - Device malfunction [Unknown]
  - Joint swelling [Not Recovered/Not Resolved]
